FAERS Safety Report 25302446 (Version 1)
Quarter: 2025Q2

REPORT INFORMATION
  Report Type: Spontaneous
  Country: BE (occurrence: BE)
  Receive Date: 20250512
  Receipt Date: 20250512
  Transmission Date: 20250717
  Serious: Yes (Hospitalization)
  Sender: MYLAN
  Company Number: None

PATIENT
  Age: 75 Year
  Sex: Female
  Weight: 90 kg

DRUGS (44)
  1. AMLODIPINE BESYLATE [Suspect]
     Active Substance: AMLODIPINE BESYLATE
     Indication: Hypertension
     Dosage: 1 DOSAGE FORM, QD (PATIENT ON AMLOR FOR SEVERAL YEARS)
  2. AMLODIPINE BESYLATE [Suspect]
     Active Substance: AMLODIPINE BESYLATE
     Dosage: 1 DOSAGE FORM, QD (PATIENT ON AMLOR FOR SEVERAL YEARS)
     Route: 048
  3. AMLODIPINE BESYLATE [Suspect]
     Active Substance: AMLODIPINE BESYLATE
     Dosage: 1 DOSAGE FORM, QD (PATIENT ON AMLOR FOR SEVERAL YEARS)
     Route: 048
  4. AMLODIPINE BESYLATE [Suspect]
     Active Substance: AMLODIPINE BESYLATE
     Dosage: 1 DOSAGE FORM, QD (PATIENT ON AMLOR FOR SEVERAL YEARS)
  5. IRBESARTAN [Suspect]
     Active Substance: IRBESARTAN
     Indication: Product used for unknown indication
  6. IRBESARTAN [Suspect]
     Active Substance: IRBESARTAN
     Route: 065
  7. IRBESARTAN [Suspect]
     Active Substance: IRBESARTAN
     Route: 065
  8. IRBESARTAN [Suspect]
     Active Substance: IRBESARTAN
  9. Pantomed [Concomitant]
  10. Pantomed [Concomitant]
     Route: 065
  11. Pantomed [Concomitant]
     Route: 065
  12. Pantomed [Concomitant]
  13. LANTUS [Concomitant]
     Active Substance: INSULIN GLARGINE
  14. LANTUS [Concomitant]
     Active Substance: INSULIN GLARGINE
     Route: 065
  15. LANTUS [Concomitant]
     Active Substance: INSULIN GLARGINE
     Route: 065
  16. LANTUS [Concomitant]
     Active Substance: INSULIN GLARGINE
  17. DUPHALAC [Concomitant]
     Active Substance: LACTULOSE
  18. DUPHALAC [Concomitant]
     Active Substance: LACTULOSE
     Route: 065
  19. DUPHALAC [Concomitant]
     Active Substance: LACTULOSE
     Route: 065
  20. DUPHALAC [Concomitant]
     Active Substance: LACTULOSE
  21. JANUVIA [Concomitant]
     Active Substance: SITAGLIPTIN PHOSPHATE
  22. JANUVIA [Concomitant]
     Active Substance: SITAGLIPTIN PHOSPHATE
     Route: 065
  23. JANUVIA [Concomitant]
     Active Substance: SITAGLIPTIN PHOSPHATE
     Route: 065
  24. JANUVIA [Concomitant]
     Active Substance: SITAGLIPTIN PHOSPHATE
  25. LATANOPROST [Concomitant]
     Active Substance: LATANOPROST
  26. LATANOPROST [Concomitant]
     Active Substance: LATANOPROST
     Route: 065
  27. LATANOPROST [Concomitant]
     Active Substance: LATANOPROST
     Route: 065
  28. LATANOPROST [Concomitant]
     Active Substance: LATANOPROST
  29. BENSERAZIDE\LEVODOPA [Concomitant]
     Active Substance: BENSERAZIDE\LEVODOPA
  30. BENSERAZIDE\LEVODOPA [Concomitant]
     Active Substance: BENSERAZIDE\LEVODOPA
     Route: 065
  31. BENSERAZIDE\LEVODOPA [Concomitant]
     Active Substance: BENSERAZIDE\LEVODOPA
     Route: 065
  32. BENSERAZIDE\LEVODOPA [Concomitant]
     Active Substance: BENSERAZIDE\LEVODOPA
  33. ASPIRIN [Concomitant]
     Active Substance: ASPIRIN
  34. ASPIRIN [Concomitant]
     Active Substance: ASPIRIN
     Route: 065
  35. ASPIRIN [Concomitant]
     Active Substance: ASPIRIN
     Route: 065
  36. ASPIRIN [Concomitant]
     Active Substance: ASPIRIN
  37. BENSERAZIDE\LEVODOPA [Concomitant]
     Active Substance: BENSERAZIDE\LEVODOPA
  38. BENSERAZIDE\LEVODOPA [Concomitant]
     Active Substance: BENSERAZIDE\LEVODOPA
     Route: 065
  39. BENSERAZIDE\LEVODOPA [Concomitant]
     Active Substance: BENSERAZIDE\LEVODOPA
     Route: 065
  40. BENSERAZIDE\LEVODOPA [Concomitant]
     Active Substance: BENSERAZIDE\LEVODOPA
  41. ASCORBIC ACID\FERROUS SULFATE [Concomitant]
     Active Substance: ASCORBIC ACID\FERROUS SULFATE
  42. ASCORBIC ACID\FERROUS SULFATE [Concomitant]
     Active Substance: ASCORBIC ACID\FERROUS SULFATE
     Route: 065
  43. ASCORBIC ACID\FERROUS SULFATE [Concomitant]
     Active Substance: ASCORBIC ACID\FERROUS SULFATE
     Route: 065
  44. ASCORBIC ACID\FERROUS SULFATE [Concomitant]
     Active Substance: ASCORBIC ACID\FERROUS SULFATE

REACTIONS (7)
  - Hyperkalaemia [Recovering/Resolving]
  - Acute kidney injury [Recovering/Resolving]
  - Confusional state [Recovering/Resolving]
  - Incoherent [Recovering/Resolving]
  - Bundle branch block right [Recovering/Resolving]
  - Bundle branch block left [Recovering/Resolving]
  - Bradycardia [Recovering/Resolving]

NARRATIVE: CASE EVENT DATE: 20250406
